FAERS Safety Report 4919796-5 (Version None)
Quarter: 2006Q1

REPORT INFORMATION
  Report Type: 
  Country: None (occurrence: None)
  Receive Date: 20060217
  Receipt Date: 20060206
  Transmission Date: 20060701
  Serious: Yes (Disabling, Other)
  Sender: FDA-Public Use
  Company Number: 2006019418

PATIENT
  Sex: Male

DRUGS (2)
  1. DILANTIN [Suspect]
     Indication: CONVULSION
     Dates: start: 19530101
  2. PHENOBARBITAL TAB [Concomitant]

REACTIONS (9)
  - CARPAL TUNNEL SYNDROME [None]
  - CONVULSION [None]
  - HEAD INJURY [None]
  - MULTIPLE ALLERGIES [None]
  - MUSCLE INJURY [None]
  - OSTEOARTHRITIS [None]
  - RHEUMATOID ARTHRITIS [None]
  - ROAD TRAFFIC ACCIDENT [None]
  - WEIGHT INCREASED [None]
